FAERS Safety Report 6610238-0 (Version None)
Quarter: 2010Q1

REPORT INFORMATION
  Report Type: 
  Country: None (occurrence: None)
  Receive Date: 20100216
  Receipt Date: 20090807
  Transmission Date: 20100710
  Serious: Yes (Other)
  Sender: FDA-Public Use
  Company Number: MC200900285

PATIENT
  Age: 62 Year
  Sex: Male

DRUGS (5)
  1. ANGIOMAX [Suspect]
     Indication: PERCUTANEOUS CORONARY INTERVENTION
     Dosage: 19 ML, BOLUS, INTRAVENOUS : 44 ML/HR, INTRAVENOUS
     Route: 040
     Dates: start: 20090807, end: 20090807
  2. ANGIOMAX [Suspect]
     Indication: PERCUTANEOUS CORONARY INTERVENTION
     Dosage: 19 ML, BOLUS, INTRAVENOUS : 44 ML/HR, INTRAVENOUS
     Route: 040
     Dates: start: 20090807, end: 20090807
  3. ASPIRIN [Concomitant]
  4. PLAVIX [Concomitant]
  5. INTEGRILIN [Concomitant]

REACTIONS (2)
  - COAGULATION TIME ABNORMAL [None]
  - THROMBOSIS IN DEVICE [None]
